FAERS Safety Report 23733982 (Version 2)
Quarter: 2024Q4

REPORT INFORMATION
  Report Type: Report from Study
  Country: US (occurrence: US)
  Receive Date: 20240412
  Receipt Date: 20241119
  Transmission Date: 20250114
  Serious: Yes (Hospitalization, Other)
  Sender: TAKEDA
  Company Number: US-TAKEDA-US201944941

PATIENT
  Age: 76 Year
  Sex: Female
  Weight: 61 kg

DRUGS (15)
  1. LANADELUMAB [Suspect]
     Active Substance: LANADELUMAB
     Indication: Immune system disorder
     Dosage: 300 MILLIGRAM, Q2WEEKS
     Dates: start: 20191205
  2. LANADELUMAB [Suspect]
     Active Substance: LANADELUMAB
     Indication: Ill-defined disorder
     Dosage: 300 MILLIGRAM, Q2WEEKS
     Dates: start: 20191206
  3. LANADELUMAB [Suspect]
     Active Substance: LANADELUMAB
     Indication: Gastrooesophageal reflux disease
  4. LANADELUMAB [Suspect]
     Active Substance: LANADELUMAB
     Indication: Osteoporosis
  5. LANADELUMAB [Suspect]
     Active Substance: LANADELUMAB
     Indication: Illness
  6. ICATIBANT [Concomitant]
     Active Substance: ICATIBANT ACETATE
     Indication: Product used for unknown indication
     Dosage: UNK
  7. EPINEPHRINE [Concomitant]
     Active Substance: EPINEPHRINE
     Indication: Product used for unknown indication
     Dosage: UNK
  8. METOPROLOL TARTRATE [Concomitant]
     Active Substance: METOPROLOL TARTRATE
     Indication: Product used for unknown indication
     Dosage: UNK
  9. HAEGARDA [Concomitant]
     Active Substance: HUMAN C1-ESTERASE INHIBITOR
     Indication: Product used for unknown indication
     Dosage: UNK
  10. MICARDIS [Concomitant]
     Active Substance: TELMISARTAN
     Indication: Product used for unknown indication
     Dosage: UNK
  11. PRAVASTATIN SODIUM [Concomitant]
     Active Substance: PRAVASTATIN SODIUM
     Indication: Product used for unknown indication
     Dosage: UNK
  12. VERAPAMIL [Concomitant]
     Active Substance: VERAPAMIL HYDROCHLORIDE
     Indication: Product used for unknown indication
     Dosage: UNK
  13. ADVIL [Concomitant]
     Active Substance: IBUPROFEN
     Dosage: UNK
  14. CYANOCOBALAMIN [Concomitant]
     Active Substance: CYANOCOBALAMIN
     Dosage: UNK
  15. VITAMIN D [Concomitant]
     Active Substance: VITAMIN D NOS
     Dosage: UNK

REACTIONS (5)
  - Rotator cuff syndrome [Unknown]
  - Cataract [Unknown]
  - Urticaria [Unknown]
  - Limb discomfort [Unknown]
  - Product use in unapproved indication [Unknown]

NARRATIVE: CASE EVENT DATE: 20191205
